FAERS Safety Report 12339073 (Version 1)
Quarter: 2016Q2

REPORT INFORMATION
  Report Type: Spontaneous
  Country: US (occurrence: US)
  Receive Date: 20160505
  Receipt Date: 20160505
  Transmission Date: 20160815
  Serious: No
  Sender: FDA-Public Use
  Company Number: US-MAYNE PHARMA-2015MYN000028

PATIENT
  Sex: Female
  Weight: 52.34 kg

DRUGS (8)
  1. SYNTHROID [Suspect]
     Active Substance: LEVOTHYROXINE SODIUM
     Indication: PRODUCT USED FOR UNKNOWN INDICATION
  2. TYROSINE [Concomitant]
     Active Substance: TYROSINE
  3. ASPIRIN                            /00002701/ [Concomitant]
     Active Substance: ASPIRIN
     Dosage: UNK
  4. LIOTHYRONINE [Suspect]
     Active Substance: LIOTHYRONINE
  5. FISH OIL [Concomitant]
     Active Substance: FISH OIL
  6. VITAMIN D                          /00107901/ [Concomitant]
     Active Substance: ERGOCALCIFEROL
  7. CENTRUM SILVER                     /02363801/ [Concomitant]
     Active Substance: MINERALS\VITAMINS
  8. CYTOMEL [Suspect]
     Active Substance: LIOTHYRONINE SODIUM
     Indication: PRODUCT USED FOR UNKNOWN INDICATION
     Dosage: 12.5 MG, UNK

REACTIONS (5)
  - Drug hypersensitivity [Recovered/Resolved]
  - Thyroid disorder [Recovered/Resolved]
  - Joint swelling [Recovered/Resolved]
  - Arthropathy [Recovered/Resolved]
  - Peripheral swelling [Recovered/Resolved]
